FAERS Safety Report 22190160 (Version 1)
Quarter: 2023Q2

REPORT INFORMATION
  Report Type: Spontaneous
  Country: US (occurrence: US)
  Receive Date: 20230410
  Receipt Date: 20230410
  Transmission Date: 20230721
  Serious: No
  Sender: FDA-Public Use
  Company Number: US-AVEO ONCOLOGY-2023-AVEO-US000021

PATIENT

DRUGS (21)
  1. FOTIVDA [Suspect]
     Active Substance: TIVOZANIB HYDROCHLORIDE
     Indication: Renal cell carcinoma
     Dosage: 1.34 MG, DAILY FOR 21 DAYS WITH 7 DAYS OFF (28-DAY CYCLE)
     Route: 048
     Dates: start: 20221102
  2. ALLOPURINOL [Concomitant]
     Active Substance: ALLOPURINOL
     Dosage: 300 MG
     Route: 048
  3. AMLODIPINE BESYLATE [Concomitant]
     Active Substance: AMLODIPINE BESYLATE
     Dosage: 10 MG
     Route: 048
  4. ATORVASTATIN CALCIUM [Concomitant]
     Active Substance: ATORVASTATIN CALCIUM
     Dosage: 20 MG
     Route: 048
  5. CETIRIZINE HCL [Concomitant]
     Active Substance: CETIRIZINE HYDROCHLORIDE
     Dosage: UNK
  6. DIAZEPAM [Concomitant]
     Active Substance: DIAZEPAM
     Dosage: 5 MG
     Route: 048
  7. GABAPENTIN [Concomitant]
     Active Substance: GABAPENTIN
     Dosage: 900 MG
  8. GLIMEPIRIDE [Concomitant]
     Active Substance: GLIMEPIRIDE
     Dosage: 1 MG
     Route: 048
  9. KEYTRUDA [Concomitant]
     Active Substance: PEMBROLIZUMAB
     Dosage: 200 MG
  10. LEVOTHYROXINE SODIUM [Concomitant]
     Active Substance: LEVOTHYROXINE SODIUM
     Dosage: 112 MCG
     Route: 048
  11. LISINOPRIL [Concomitant]
     Active Substance: LISINOPRIL
     Dosage: 40 MG
     Route: 048
  12. NIVOLUMAB [Concomitant]
     Active Substance: NIVOLUMAB
     Dosage: 480 MG
  13. OMEPRAZOLE [Concomitant]
     Active Substance: OMEPRAZOLE
     Dosage: 20 MG
     Route: 048
  14. OXYCODONE AND ACETAMINOPHEN [Concomitant]
     Active Substance: ACETAMINOPHEN\OXYCODONE HYDROCHLORIDE
     Dosage: 5-325 MG
     Route: 048
  15. TRIAMCINOLONE ACETONIDE [Concomitant]
     Active Substance: TRIAMCINOLONE ACETONIDE
  16. TYLENOL [Concomitant]
     Active Substance: ACETAMINOPHEN
  17. VALIUM [Concomitant]
     Active Substance: DIAZEPAM
     Dosage: 2 MG
     Route: 048
  18. VITAMIN D [Concomitant]
     Active Substance: VITAMIN D NOS
  19. YERVOY [Concomitant]
     Active Substance: IPILIMUMAB
     Dosage: 50MG/10ML
     Route: 042
  20. ZOFRAN [Concomitant]
     Active Substance: ONDANSETRON HYDROCHLORIDE
     Dosage: 8 MG
     Route: 048
  21. ZOMETA [Concomitant]
     Active Substance: ZOLEDRONIC ACID
     Dosage: 4 MG

REACTIONS (5)
  - Illness [Unknown]
  - Feeling abnormal [Unknown]
  - Aphasia [Unknown]
  - Asthenia [Unknown]
  - Walking aid user [Unknown]
